FAERS Safety Report 9753700 (Version 5)
Quarter: 2014Q3

REPORT INFORMATION
  Report Type: Spontaneous
  Country: AU (occurrence: None)
  Receive Date: 20131211
  Receipt Date: 20140825
  Transmission Date: 20150326
  Serious: Yes (Hospitalization, Other)
  Sender: FDA-Public Use
  Company Number: 2013AU002864

PATIENT
  Age: 61 Year
  Sex: Male
  Weight: 110 kg

DRUGS (9)
  1. NIFEDIPINE (NIFEDIPINE) (NIFEDIPINE) [Concomitant]
     Active Substance: NIFEDIPINE
  2. METFORMIN [Concomitant]
     Active Substance: METFORMIN HYDROCHLORIDE
  3. DIAMICRON (GLICLAZIDE) [Concomitant]
  4. PONATINIB [Suspect]
     Active Substance: PONATINIB
     Indication: CHRONIC MYELOID LEUKAEMIA
     Route: 048
     Dates: start: 20110328, end: 20131126
  5. COLOXYL WITH SENNA (DOCUSATE SODIUM, SENNOSIDE A+B) [Concomitant]
  6. METOPROLOL (METOPROLOL TARTRATE) [Concomitant]
     Active Substance: METOPROLOL TARTRATE
  7. ACARBOSE (ACARBOSE) [Concomitant]
  8. CANDESARTAN W/HYDROCHLOROTHIAZIDE (CANDESARTAN W/HYDROCHLOROTHIAZIDE) [Concomitant]
     Active Substance: CANDESARTAN CILEXETIL\HYDROCHLOROTHIAZIDE
  9. ATORVASTATIN (ATORVASTATIN) [Concomitant]
     Active Substance: ATORVASTATIN

REACTIONS (15)
  - Pancreatitis [None]
  - Blood glucose increased [None]
  - Blood pressure increased [None]
  - Total cholesterol/HDL ratio decreased [None]
  - Peripheral artery stenosis [None]
  - Acute coronary syndrome [None]
  - High density lipoprotein decreased [None]
  - Carotid arteriosclerosis [None]
  - Cerebral artery stenosis [None]
  - Atrial fibrillation [None]
  - Abdominal pain upper [None]
  - Lacunar infarction [None]
  - Cholecystitis acute [None]
  - Blood triglycerides increased [None]
  - Cerebral calcification [None]

NARRATIVE: CASE EVENT DATE: 20131126
